FAERS Safety Report 11695130 (Version 1)
Quarter: 2015Q4

REPORT INFORMATION
  Report Type: Spontaneous
  Country: US (occurrence: US)
  Receive Date: 20151103
  Receipt Date: 20151103
  Transmission Date: 20160304
  Serious: Yes (Other)
  Sender: FDA-Public Use
  Company Number: US-CONCORDIA PHARMACEUTICALS INC.-CO-PL-US-2015-341

PATIENT

DRUGS (4)
  1. HYDROXYCHLOROQUINE SULFATE. [Suspect]
     Active Substance: HYDROXYCHLOROQUINE SULFATE
     Indication: RHEUMATOID ARTHRITIS
     Route: 065
  2. ARAVA [Suspect]
     Active Substance: LEFLUNOMIDE
     Indication: RHEUMATOID ARTHRITIS
  3. METHOTREXATE [Suspect]
     Active Substance: METHOTREXATE
     Indication: RHEUMATOID ARTHRITIS
  4. HUMIRA [Suspect]
     Active Substance: ADALIMUMAB
     Indication: RHEUMATOID ARTHRITIS

REACTIONS (16)
  - Peripheral swelling [Unknown]
  - Immunodeficiency [Unknown]
  - Sjogren^s syndrome [Unknown]
  - Pain in extremity [Unknown]
  - Red blood cell sedimentation rate increased [Unknown]
  - Arthralgia [Unknown]
  - Arthropathy [Unknown]
  - Autoimmune thyroiditis [Unknown]
  - Bone marrow oedema [Unknown]
  - Bone erosion [Unknown]
  - Cartilage injury [Unknown]
  - Groin pain [Unknown]
  - Platelet count increased [Unknown]
  - Synovitis [Unknown]
  - Eye disorder [Unknown]
  - Inflammation [Unknown]
